FAERS Safety Report 6291540-1 (Version None)
Quarter: 2009Q3

REPORT INFORMATION
  Report Type: 
  Country: None (occurrence: None)
  Receive Date: 20090730
  Receipt Date: 20090720
  Transmission Date: 20100115
  Serious: Yes (Other)
  Sender: FDA-Public Use
  Company Number: GB-ELI_LILLY_AND_COMPANY-GB200907004384

PATIENT
  Age: 29 Year
  Sex: Female

DRUGS (1)
  1. ZYPREXA [Suspect]

REACTIONS (3)
  - DRUG EXPOSURE DURING PREGNANCY [None]
  - HELLP SYNDROME [None]
  - OEDEMA [None]
